FAERS Safety Report 5059451-7 (Version None)
Quarter: 2006Q3

REPORT INFORMATION
  Report Type: 
  Country: None (occurrence: None)
  Receive Date: 20060724
  Receipt Date: 20060713
  Transmission Date: 20061208
  Serious: Yes (Hospitalization)
  Sender: FDA-Public Use
  Company Number: ES-AVENTIS-200613888EU

PATIENT
  Age: 41 Year
  Sex: Female

DRUGS (1)
  1. CLEXANE [Suspect]
     Route: 058
     Dates: start: 20010312, end: 20010321

REACTIONS (6)
  - ABASIA [None]
  - APHASIA [None]
  - CEREBRAL ARTERY EMBOLISM [None]
  - CEREBROVASCULAR ACCIDENT [None]
  - HEMIPARESIS [None]
  - PAIN IN EXTREMITY [None]
